FAERS Safety Report 12166305 (Version 1)
Quarter: 2016Q1

REPORT INFORMATION
  Report Type: Spontaneous
  Country: FR (occurrence: FR)
  Receive Date: 20160309
  Receipt Date: 20160309
  Transmission Date: 20160526
  Serious: Yes (Other)
  Sender: FDA-Public Use
  Company Number: FR-009507513-1603FRA003998

PATIENT
  Age: 17 Year
  Sex: Female

DRUGS (4)
  1. IFOSFAMIDE. [Interacting]
     Active Substance: IFOSFAMIDE
     Indication: MESENTERIC NEOPLASM
     Dosage: 1800MG/M2
     Route: 042
     Dates: start: 20140704, end: 20140708
  2. ETOPOSIDE. [Interacting]
     Active Substance: ETOPOSIDE
     Dosage: 100 MG/M2, UNK
     Route: 042
     Dates: start: 20140704, end: 20140708
  3. UROMITEXAN [Concomitant]
     Active Substance: MESNA
     Dosage: 450 MG/M2, UNK
     Route: 042
  4. EMEND [Suspect]
     Active Substance: APREPITANT
     Dosage: UNK
     Dates: start: 20140706, end: 20140707

REACTIONS (1)
  - Encephalopathy [Recovered/Resolved]

NARRATIVE: CASE EVENT DATE: 20140707
